FAERS Safety Report 9165747 (Version 1)
Quarter: 2013Q1

REPORT INFORMATION
  Report Type: Spontaneous
  Country: AU (occurrence: None)
  Receive Date: 20130228
  Receipt Date: 20130228
  Transmission Date: 20140127
  Serious: Yes (Hospitalization, Other)
  Sender: FDA-Public Use
  Company Number: 2013AP003336

PATIENT
  Age: 69 Year
  Sex: Female

DRUGS (3)
  1. LEVETIRACETAM (LEVETIRACETAM) [Suspect]
  2. CARBAMAZEPINE (CARBAMAZEPINE) [Suspect]
  3. VALPROIC ACID (VALPROIC ACID) [Suspect]

REACTIONS (5)
  - Tubulointerstitial nephritis [None]
  - Mucosal inflammation [None]
  - Herpes simplex [None]
  - Stomatitis [None]
  - Oliguria [None]
